FAERS Safety Report 9528471 (Version 5)
Quarter: 2014Q4

REPORT INFORMATION
  Report Type: Report from Study
  Country: BR (occurrence: BR)
  Receive Date: 20130917
  Receipt Date: 20141209
  Transmission Date: 20150529
  Serious: Yes (Hospitalization, Other)
  Sender: FDA-Public Use
  Company Number: BR-ABBVIE-12P-020-1005208-00

PATIENT
  Age: 66 Year
  Sex: Male
  Weight: 58 kg

DRUGS (8)
  1. HUMIRA [Suspect]
     Active Substance: ADALIMUMAB
     Dosage: MAINTAINANCE DOSE
     Route: 058
     Dates: start: 201211
  2. MESALAZINE [Concomitant]
     Active Substance: MESALAMINE
     Indication: CROHN^S DISEASE
  3. HUMIRA [Suspect]
     Active Substance: ADALIMUMAB
     Dosage: WEEK 2
     Route: 058
     Dates: start: 201211, end: 201211
  4. IMOSEC [Concomitant]
     Active Substance: LOPERAMIDE
     Indication: GASTROINTESTINAL MOTILITY DISORDER
     Route: 048
  5. HUMIRA [Suspect]
     Active Substance: ADALIMUMAB
     Indication: CROHN^S DISEASE
     Dosage: WEEK 0
     Route: 058
     Dates: start: 20121031, end: 20121031
  6. HUMIRA [Suspect]
     Active Substance: ADALIMUMAB
     Route: 058
  7. HUMIRA [Suspect]
     Active Substance: ADALIMUMAB
     Route: 058
     Dates: end: 201408
  8. MESALAZINE [Concomitant]
     Active Substance: MESALAMINE
     Indication: ANTIINFLAMMATORY THERAPY
     Dosage: 4 TABLET
     Route: 048
     Dates: start: 2008

REACTIONS (25)
  - Stomatitis [Unknown]
  - Inflammation [Recovered/Resolved]
  - Pharyngeal inflammation [Not Recovered/Not Resolved]
  - Oral mucosal exfoliation [Unknown]
  - Oral pain [Unknown]
  - Arthralgia [Not Recovered/Not Resolved]
  - Stomatitis [Not Recovered/Not Resolved]
  - Fatigue [Unknown]
  - Upper extremity mass [Not Recovered/Not Resolved]
  - Skin lesion [Not Recovered/Not Resolved]
  - Muscle spasms [Not Recovered/Not Resolved]
  - Diarrhoea [Not Recovered/Not Resolved]
  - Anal inflammation [Unknown]
  - Musculoskeletal stiffness [Not Recovered/Not Resolved]
  - Throat lesion [Not Recovered/Not Resolved]
  - Abdominal pain [Unknown]
  - Weight decreased [Recovered/Resolved]
  - Gastrointestinal inflammation [Unknown]
  - Diarrhoea [Recovering/Resolving]
  - VIIth nerve paralysis [Recovered/Resolved]
  - Inflammation [Not Recovered/Not Resolved]
  - Oral disorder [Recovered/Resolved]
  - Middle ear inflammation [Not Recovered/Not Resolved]
  - Feeding disorder [Unknown]
  - Drug ineffective [Unknown]

NARRATIVE: CASE EVENT DATE: 20121031
